FAERS Safety Report 9310352 (Version 1)
Quarter: 2013Q2

REPORT INFORMATION
  Report Type: Report from Study
  Country: ES (occurrence: ES)
  Receive Date: 20130527
  Receipt Date: 20130527
  Transmission Date: 20140414
  Serious: Yes (Hospitalization)
  Sender: FDA-Public Use
  Company Number: ES-PFIZER INC-2013157767

PATIENT
  Age: 69 Year
  Sex: Male

DRUGS (3)
  1. VFEND [Suspect]
     Indication: BRONCHOPULMONARY ASPERGILLOSIS
     Dosage: 200 MG, 2X/DAY
     Route: 048
     Dates: start: 20120207, end: 20120217
  2. LEVOFLOXACIN [Suspect]
     Indication: LUNG INFECTION
     Dosage: 250 MG, DAILY
     Route: 048
     Dates: start: 20120211, end: 20120217
  3. ZYVOXID [Concomitant]
     Dosage: UNK
     Route: 048
     Dates: start: 201202

REACTIONS (1)
  - Myoclonus [Recovered/Resolved]
